FAERS Safety Report 15891767 (Version 4)
Quarter: 2019Q4

REPORT INFORMATION
  Report Type: Report from Study
  Country: US (occurrence: US)
  Receive Date: 20190130
  Receipt Date: 20191214
  Transmission Date: 20200122
  Serious: No
  Sender: FDA-Public Use
  Company Number: PHEH2019US004158

PATIENT
  Sex: Female

DRUGS (1)
  1. GILENYA [Suspect]
     Active Substance: FINGOLIMOD HYDROCHLORIDE
     Indication: MULTIPLE SCLEROSIS
     Dosage: 0.5 MG, QD
     Route: 048

REACTIONS (7)
  - Bladder disorder [Unknown]
  - Fatigue [Unknown]
  - Somnolence [Unknown]
  - White blood cell count decreased [Unknown]
  - Pollakiuria [Unknown]
  - Nocturia [Unknown]
  - Back pain [Unknown]
